FAERS Safety Report 14033900 (Version 1)
Quarter: 2017Q4

REPORT INFORMATION
  Report Type: Spontaneous
  Country: US (occurrence: US)
  Receive Date: 20171003
  Receipt Date: 20171003
  Transmission Date: 20180321
  Serious: Yes (Hospitalization)
  Sender: FDA-Public Use
  Company Number: None

PATIENT
  Age: 52 Year
  Sex: Male

DRUGS (4)
  1. OXYCODONE [Concomitant]
     Active Substance: OXYCODONE
  2. MORPHINE [Concomitant]
     Active Substance: MORPHINE
  3. DIAZEPAM. [Concomitant]
     Active Substance: DIAZEPAM
  4. ZELBORAF [Suspect]
     Active Substance: VEMURAFENIB
     Indication: MALIGNANT MELANOMA
     Dates: start: 20150729

REACTIONS (1)
  - Adverse drug reaction [None]

NARRATIVE: CASE EVENT DATE: 20171002
